FAERS Safety Report 5444950-6 (Version None)
Quarter: 2007Q3

REPORT INFORMATION
  Report Type: 
  Country: None (occurrence: None)
  Receive Date: 20070906
  Receipt Date: 20070829
  Transmission Date: 20080115
  Serious: Yes (Death)
  Sender: FDA-Public Use
  Company Number: IT-ROCHE-514028

PATIENT
  Age: 59 Year
  Sex: Male

DRUGS (6)
  1. COPEGUS [Suspect]
     Indication: HEPATITIS C
     Route: 048
     Dates: start: 20060101, end: 20061001
  2. PEG-INTRON [Suspect]
     Indication: HEPATITIS C
     Dosage: ROUTE: PARENTERAL. FORM: VIAL.
     Route: 050
     Dates: start: 20060101, end: 20061001
  3. CARDURA [Concomitant]
     Indication: HYPERTENSION
     Dates: start: 19930101
  4. NORVASC [Concomitant]
     Indication: HYPERTENSION
     Dates: start: 19930101
  5. VALPRESSION [Concomitant]
     Indication: HYPERTENSION
     Dates: start: 19930101
  6. ASACOL [Concomitant]
     Dates: start: 19990101

REACTIONS (10)
  - ACUTE RESPIRATORY DISTRESS SYNDROME [None]
  - ANXIETY [None]
  - ASTHENIA [None]
  - CIRCADIAN RHYTHM SLEEP DISORDER [None]
  - CYANOSIS [None]
  - GANGRENE [None]
  - INTERSTITIAL LUNG DISEASE [None]
  - IRRITABILITY [None]
  - MYALGIA [None]
  - PYREXIA [None]
